FAERS Safety Report 14060440 (Version 1)
Quarter: 2017Q4

REPORT INFORMATION
  Report Type: Spontaneous
  Country: US (occurrence: US)
  Receive Date: 20171006
  Receipt Date: 20171006
  Transmission Date: 20180321
  Serious: No
  Sender: FDA-Public Use
  Company Number: US-AMGEN-USASP2017065896

PATIENT

DRUGS (2)
  1. VEMURAFENIB. [Concomitant]
     Active Substance: VEMURAFENIB
     Indication: COLON CANCER
  2. PANITUMUMAB [Suspect]
     Active Substance: PANITUMUMAB
     Indication: COLON CANCER
     Dosage: UNK
     Route: 065

REACTIONS (1)
  - Off label use [Unknown]
